FAERS Safety Report 7768333 (Version 3)
Quarter: 2012Q4

REPORT INFORMATION
  Report Type: Report from Study
  Country: BR (occurrence: BR)
  Receive Date: 20110121
  Receipt Date: 20121211
  Transmission Date: 20130627
  Serious: Yes (Other)
  Sender: FDA-Public Use
  Company Number: BR-AMGEN-BRACT2011002889

PATIENT
  Age: 55 Year
  Sex: Male
  Weight: 85 kg

DRUGS (2)
  1. ETANERCEPT [Suspect]
     Indication: ANKYLOSING SPONDYLITIS
     Dosage: 25 mg, 2 times/wk (Tuesdays and Fridays)
     Route: 058
     Dates: start: 200701, end: 201211
  2. TANDRILAX [Concomitant]
     Dosage: UNK, every 4 hour

REACTIONS (4)
  - Visual impairment [Unknown]
  - Uveitis [Recovered/Resolved]
  - Pain [Unknown]
  - Infection [Not Recovered/Not Resolved]
